FAERS Safety Report 7309341-1 (Version None)
Quarter: 2011Q1

REPORT INFORMATION
  Report Type: 
  Country: None (occurrence: None)
  Receive Date: 20110223
  Receipt Date: 20110217
  Transmission Date: 20110831
  Serious: Yes (Other)
  Sender: FDA-Public Use
  Company Number: BR-PFIZER INC-2009250131

PATIENT
  Age: 37 Year
  Sex: Male
  Weight: 77 kg

DRUGS (7)
  1. PROMETAZIN [Concomitant]
     Dosage: 50MG
  2. METFORMIN [Concomitant]
     Indication: DIABETES MELLITUS
     Dosage: UNK
  3. CLONAZEPAM [Suspect]
     Dosage: UNK
     Route: 048
  4. GLIBENCLAMIDE [Concomitant]
     Indication: DIABETES MELLITUS
     Dosage: UNK
  5. AMLODIPINE [Concomitant]
     Dosage: UNK
  6. DEPAKENE [Concomitant]
     Dosage: 1000MG
     Dates: start: 20080101
  7. GEODON [Suspect]
     Indication: NERVOUSNESS
     Dosage: 160 MG, 1X/DAY
     Route: 048
     Dates: start: 20040101

REACTIONS (8)
  - DRUG DEPENDENCE [None]
  - CRYING [None]
  - ERUCTATION [None]
  - SPEECH DISORDER [None]
  - AGGRESSION [None]
  - FATIGUE [None]
  - MOOD ALTERED [None]
  - SOMNOLENCE [None]
